FAERS Safety Report 17931853 (Version 1)
Quarter: 2020Q2

REPORT INFORMATION
  Report Type: Spontaneous
  Country: ES (occurrence: ES)
  Receive Date: 20200623
  Receipt Date: 20200623
  Transmission Date: 20200714
  Serious: Yes (Hospitalization)
  Sender: FDA-Public Use
  Company Number: ES-JNJFOC-20200622645

PATIENT
  Age: 36 Year
  Sex: Male

DRUGS (4)
  1. INVOKANA [Suspect]
     Active Substance: CANAGLIFLOZIN
     Indication: DIABETES MELLITUS
     Dosage: INVOKANA 300 MG FILM-COATED TABLETS 30 TABLETS
     Route: 048
     Dates: start: 20170322, end: 20200501
  2. LANTUS [Concomitant]
     Active Substance: INSULIN GLARGINE
     Indication: DIABETES MELLITUS
     Dosage: LANTUS SOLOSTAR 100 UNITS/ML INJECTABLE SOLUTION IN PRELOADED PEN, 5 PRE-LOADED PENS OF 3 ML
     Route: 058
     Dates: start: 20171108
  3. METFORMIN [Concomitant]
     Active Substance: METFORMIN HYDROCHLORIDE
     Indication: DIABETES MELLITUS
     Dosage: METFORMIN CINFA 850 MG FILM-COATED TABLET EFG 50 TABLETS
     Route: 048
     Dates: start: 20160713
  4. TRULICITY [Concomitant]
     Active Substance: DULAGLUTIDE
     Indication: DIABETES MELLITUS
     Dosage: 1.5 MG INJECTABLE SOLUTION IN PRE-LOADED PEN 4 PRE-LOADED PENS
     Route: 058
     Dates: start: 20160713

REACTIONS (1)
  - Diabetic ketoacidosis [Recovered/Resolved]

NARRATIVE: CASE EVENT DATE: 20200501
